FAERS Safety Report 25958703 (Version 3)
Quarter: 2025Q4

REPORT INFORMATION
  Report Type: Spontaneous
  Country: US (occurrence: US)
  Receive Date: 20251024
  Receipt Date: 20251126
  Transmission Date: 20260117
  Serious: Yes (Hospitalization, Other)
  Sender: MERCK SHARP & DOHME LLC
  Company Number: US-009507513-2340117

PATIENT
  Age: 50 Year
  Sex: Female

DRUGS (3)
  1. PEMBROLIZUMAB [Suspect]
     Active Substance: PEMBROLIZUMAB
     Indication: Malignant blue naevus
     Dosage: THREE TREATMENTS GIVEN THEN HELD
     Route: 042
     Dates: start: 2021, end: 2021
  2. PEMBROLIZUMAB [Suspect]
     Active Substance: PEMBROLIZUMAB
     Indication: Malignant blue naevus
     Dosage: RESTARTED AFTER 1 MONTH, DISCONTINUED AFTER 1 DOSE
     Route: 042
     Dates: start: 2021, end: 2021
  3. PEMBROLIZUMAB [Suspect]
     Active Substance: PEMBROLIZUMAB
     Indication: Malignant blue naevus
     Dosage: COMPLETED 4 INFUSIONS
     Route: 042
     Dates: start: 2023, end: 2024

REACTIONS (6)
  - Sialoadenitis [Not Recovered/Not Resolved]
  - Immune-mediated hepatitis [Recovering/Resolving]
  - Off label use [Unknown]
  - Stomatitis [Not Recovered/Not Resolved]
  - Oesophagitis [Not Recovered/Not Resolved]
  - Candida infection [Not Recovered/Not Resolved]
